FAERS Safety Report 11030895 (Version 2)
Quarter: 2015Q2

REPORT INFORMATION
  Report Type: Spontaneous
  Country: JP (occurrence: JP)
  Receive Date: 20150415
  Receipt Date: 20150420
  Transmission Date: 20150821
  Serious: Yes (Hospitalization)
  Sender: FDA-Public Use
  Company Number: JP-EISAI MEDICAL RESEARCH-EC-2015-005879

PATIENT
  Age: 63 Year
  Sex: Male

DRUGS (5)
  1. RABEFINE [Suspect]
     Active Substance: RABEPRAZOLE
     Indication: HELICOBACTER INFECTION
  2. RABEFINE [Suspect]
     Active Substance: RABEPRAZOLE
     Indication: CHRONIC GASTRITIS
  3. GASMOTIN [Concomitant]
     Active Substance: MOSAPRIDE CITRATE
     Indication: GASTRIC ULCER
     Route: 048
     Dates: start: 201501
  4. RABEFINE [Suspect]
     Active Substance: RABEPRAZOLE
     Indication: GASTRIC ULCER
     Route: 048
     Dates: start: 20150410, end: 20150410
  5. MUCOSTA [Concomitant]
     Active Substance: REBAMIPIDE
     Indication: GASTRIC ULCER
     Route: 048
     Dates: start: 201501

REACTIONS (1)
  - Anaphylactic shock [Recovered/Resolved]

NARRATIVE: CASE EVENT DATE: 20150410
